FAERS Safety Report 7569611-9 (Version None)
Quarter: 2011Q2

REPORT INFORMATION
  Report Type: 
  Country: None (occurrence: None)
  Receive Date: 20110621
  Receipt Date: 20110621
  Transmission Date: 20111010
  Serious: Yes (Hospitalization)
  Sender: FDA-Public Use
  Company Number: None

PATIENT
  Sex: Female
  Weight: 68.2 kg

DRUGS (1)
  1. ENBREL [Suspect]
     Indication: RHEUMATOID ARTHRITIS
     Dosage: 50 MG/ML 1/WEEK SUBCUTANEOUS
     Route: 058
     Dates: start: 20080601, end: 20110408

REACTIONS (2)
  - PNEUMONITIS [None]
  - MYCOBACTERIUM AVIUM COMPLEX INFECTION [None]
